FAERS Safety Report 15793625 (Version 1)
Quarter: 2019Q1

REPORT INFORMATION
  Report Type: Spontaneous
  Country: US (occurrence: US)
  Receive Date: 20190105
  Receipt Date: 20190105
  Transmission Date: 20190417
  Serious: No
  Sender: FDA-Public Use
  Company Number: None

PATIENT
  Age: 39 Year
  Sex: Female
  Weight: 58.5 kg

DRUGS (1)
  1. TRAMADOL-ACETAMINOPHEN 37.5-325 TABS [Suspect]
     Active Substance: ACETAMINOPHEN\TRAMADOL HYDROCHLORIDE
     Indication: INTERVERTEBRAL DISC PROTRUSION
     Dosage: ?          QUANTITY:2 TABLET(S);?
     Route: 048
     Dates: start: 20181220, end: 20181221

REACTIONS (4)
  - Diarrhoea [None]
  - Dizziness [None]
  - Vomiting [None]
  - Inadequate analgesia [None]

NARRATIVE: CASE EVENT DATE: 20181220
